FAERS Safety Report 22685555 (Version 2)
Quarter: 2024Q1

REPORT INFORMATION
  Report Type: Spontaneous
  Country: DK (occurrence: DK)
  Receive Date: 20230710
  Receipt Date: 20240308
  Transmission Date: 20240410
  Serious: Yes (Other)
  Sender: FDA-Public Use
  Company Number: DK-NOVOPROD-1087434

PATIENT
  Age: 44 Year
  Sex: Female
  Weight: 65 kg

DRUGS (4)
  1. OZEMPIC [Suspect]
     Active Substance: SEMAGLUTIDE
     Indication: Weight control
     Dosage: 0.25 MG, QW
  2. OZEMPIC [Suspect]
     Active Substance: SEMAGLUTIDE
     Dosage: 0.5 MG, QW
  3. OZEMPIC [Suspect]
     Active Substance: SEMAGLUTIDE
     Dosage: UNK
     Dates: end: 202306
  4. OZEMPIC [Suspect]
     Active Substance: SEMAGLUTIDE
     Dosage: 0.75 MG, QW

REACTIONS (5)
  - Suicidal ideation [Recovered/Resolved]
  - Visual impairment [Recovered/Resolved with Sequelae]
  - Depression [Recovered/Resolved]
  - Product use in unapproved indication [Unknown]
  - Product use issue [Unknown]

NARRATIVE: CASE EVENT DATE: 20221101
